FAERS Safety Report 8126530-7 (Version None)
Quarter: 2012Q1

REPORT INFORMATION
  Report Type: 
  Country: None (occurrence: None)
  Receive Date: 20120210
  Receipt Date: 20120202
  Transmission Date: 20120608
  Serious: Yes (Other)
  Sender: FDA-Public Use
  Company Number: AR-AMGEN-ARGSP2012007982

PATIENT
  Age: 78 Year
  Sex: Female

DRUGS (3)
  1. METHOTREXATE [Concomitant]
     Dosage: UNK
     Route: 048
  2. ENBREL [Suspect]
     Indication: RHEUMATOID ARTHRITIS
     Dosage: 50 MG, WEEKLY
     Route: 058
     Dates: start: 20070410, end: 20120101
  3. FOLIC ACID [Concomitant]
     Dosage: UNK
     Route: 048

REACTIONS (3)
  - VOMITING [None]
  - RHEUMATOID ARTHRITIS [None]
  - HEADACHE [None]
